FAERS Safety Report 7717757-4 (Version None)
Quarter: 2011Q3

REPORT INFORMATION
  Report Type: 
  Country: None (occurrence: None)
  Receive Date: 20110830
  Receipt Date: 20110817
  Transmission Date: 20111222
  Serious: Yes (Other)
  Sender: FDA-Public Use
  Company Number: GB-UCBSA-039557

PATIENT
  Sex: Female

DRUGS (3)
  1. CLONAZEPAM [Suspect]
  2. LAMOTRIGINE [Suspect]
  3. LEVETIRACETAM [Suspect]

REACTIONS (2)
  - PREGNANCY [None]
  - ABORTION INDUCED [None]
